FAERS Safety Report 8046846-2 (Version None)
Quarter: 2012Q1

REPORT INFORMATION
  Report Type: 
  Country: None (occurrence: None)
  Receive Date: 20120116
  Receipt Date: 20120106
  Transmission Date: 20120608
  Serious: No
  Sender: FDA-Public Use
  Company Number: US-BIOGENIDEC-2012BI000734

PATIENT
  Age: 33 Year
  Sex: Female

DRUGS (4)
  1. AVONEX [Suspect]
     Route: 030
     Dates: start: 20030101
  2. PROZAC [Concomitant]
     Indication: DEPRESSION
     Dates: start: 20000101, end: 20110101
  3. CYMBALTA [Concomitant]
     Indication: DEPRESSION
     Dates: start: 20120101
  4. AVONEX [Suspect]
     Indication: MULTIPLE SCLEROSIS
     Route: 030
     Dates: start: 20000301

REACTIONS (6)
  - LOCAL SWELLING [None]
  - EYE PAIN [None]
  - GAIT DISTURBANCE [None]
  - VISION BLURRED [None]
  - NEURALGIA [None]
  - ANXIETY [None]
